FAERS Safety Report 5910800-4 (Version None)
Quarter: 2008Q4

REPORT INFORMATION
  Report Type: 
  Country: None (occurrence: None)
  Receive Date: 20081007
  Receipt Date: 20080512
  Transmission Date: 20090506
  Serious: No
  Sender: FDA-Public Use
  Company Number: US-ASTRAZENECA-2008UW09786

PATIENT
  Age: 65 Year
  Sex: Female
  Weight: 92.3 kg

DRUGS (9)
  1. ARIMIDEX [Suspect]
     Indication: BREAST CANCER
     Route: 048
     Dates: start: 20070801
  2. PROVIGIL [Concomitant]
  3. IBUPROFEN [Concomitant]
  4. POTASSIUM CHLORIDE [Concomitant]
  5. QUINAPRIL [Concomitant]
  6. STRESSTAB WITH ZINC [Concomitant]
  7. LIPITOR [Concomitant]
  8. MAXZIDE [Concomitant]
     Dosage: 70/50 MG
  9. PROCARDIA [Concomitant]

REACTIONS (4)
  - ARTHRALGIA [None]
  - BLOOD CALCIUM INCREASED [None]
  - FATIGUE [None]
  - NIGHT SWEATS [None]
